FAERS Safety Report 6746856-9 (Version None)
Quarter: 2010Q2

REPORT INFORMATION
  Report Type: 
  Country: None (occurrence: None)
  Receive Date: 20100528
  Receipt Date: 20100521
  Transmission Date: 20101027
  Serious: Yes (Death)
  Sender: FDA-Public Use
  Company Number: ES-ROCHE-704757

PATIENT
  Sex: Female

DRUGS (4)
  1. BEVACIZUMAB [Suspect]
     Indication: BREAST CANCER
     Dosage: FORM : VIALS  LAST DOSE PRIOR TO SAE : 7 MAY 2010
     Route: 042
     Dates: start: 20090623
  2. PACLITAXEL [Suspect]
     Indication: BREAST CANCER
     Dosage: FORM : VIALS  LAST DOSE PRIOR TO SAE : 7 MAY 2010
     Route: 042
     Dates: start: 20090623
  3. GEMCITABINE HCL [Suspect]
     Indication: BREAST CANCER
     Dosage: FORM : VIALS  LAST DOSE PRIOR TO SAE : 7 MAY 2010
     Route: 042
     Dates: start: 20090623
  4. FENTANILO [Concomitant]
     Dosage: DRUG NAME: FENTANILO TRANSDERM, FREQUENCY: ILLEGIBLE
     Dates: start: 20100507, end: 20100517

REACTIONS (1)
  - PERITONEAL DISORDER [None]
